FAERS Safety Report 4682909-7 (Version None)
Quarter: 2005Q2

REPORT INFORMATION
  Report Type: 
  Country: None (occurrence: None)
  Receive Date: 20050602
  Receipt Date: 20050301
  Transmission Date: 20051028
  Serious: No
  Sender: FDA-Public Use
  Company Number: US_0411108613

PATIENT
  Age: 66 Year
  Sex: Female
  Weight: 95 kg

DRUGS (8)
  1. CYMBALTA [Suspect]
     Indication: ARTHRALGIA
     Dosage: 30 MG/2  DAY
     Dates: start: 20041001
  2. NEXIUM [Concomitant]
  3. METAMUCIL (PLANTAGO OVATA) [Concomitant]
  4. VITAMIN E [Concomitant]
  5. CALCIUM GLUCONATE [Concomitant]
  6. MULTI-VITAMIN [Concomitant]
  7. OXYCODONE HCL [Concomitant]
  8. KLONOPIN [Concomitant]

REACTIONS (3)
  - NAUSEA [None]
  - RESTLESS LEGS SYNDROME [None]
  - SOMNOLENCE [None]
